FAERS Safety Report 6804103-3 (Version None)
Quarter: 2010Q2

REPORT INFORMATION
  Report Type: 
  Country: None (occurrence: None)
  Receive Date: 20100628
  Receipt Date: 20070326
  Transmission Date: 20101027
  Serious: No
  Sender: FDA-Public Use
  Company Number: US-PFIZER INC-2006037499

PATIENT
  Sex: Female
  Weight: 58.97 kg

DRUGS (3)
  1. GEODON [Suspect]
     Indication: ANXIETY
     Dates: start: 20060201
  2. GEODON [Suspect]
     Indication: INSOMNIA
  3. CYMBALTA [Concomitant]
     Dates: start: 20060201

REACTIONS (9)
  - DIZZINESS [None]
  - LOWER LIMB FRACTURE [None]
  - RASH [None]
  - READING DISORDER [None]
  - RHINORRHOEA [None]
  - THIRST [None]
  - TREMOR [None]
  - URTICARIA [None]
  - VISION BLURRED [None]
